FAERS Safety Report 6336799-7 (Version None)
Quarter: 2009Q3

REPORT INFORMATION
  Report Type: 
  Country: None (occurrence: None)
  Receive Date: 20090831
  Receipt Date: 20090831
  Transmission Date: 20100115
  Serious: No
  Sender: FDA-Public Use
  Company Number: None

PATIENT
  Age: 67 Year
  Sex: Female
  Weight: 54.4316 kg

DRUGS (1)
  1. ABILIFY [Suspect]
     Indication: DEPRESSION
     Dosage: 2 MGS DAILY PO
     Route: 048
     Dates: start: 20090827, end: 20090827

REACTIONS (3)
  - HICCUPS [None]
  - MIDDLE INSOMNIA [None]
  - MUSCLE SPASMS [None]
